FAERS Safety Report 7243872-8 (Version None)
Quarter: 2011Q1

REPORT INFORMATION
  Report Type: 
  Country: None (occurrence: None)
  Receive Date: 20110125
  Receipt Date: 20110119
  Transmission Date: 20110831
  Serious: Yes (Death, Hospitalization)
  Sender: FDA-Public Use
  Company Number: A0907373A

PATIENT
  Age: 75 Year
  Sex: Female

DRUGS (14)
  1. ADVAIR [Suspect]
     Indication: CHRONIC OBSTRUCTIVE PULMONARY DISEASE
     Dosage: 1PUFF TWICE PER DAY
     Route: 055
     Dates: start: 20050101, end: 20110115
  2. SPIRIVA [Concomitant]
  3. OMEPRAZOLE [Concomitant]
  4. LEVOTHYROXINE SODIUM [Concomitant]
  5. BACLOFEN [Concomitant]
  6. MIRALAX [Concomitant]
  7. ALPRAZOLAM [Concomitant]
  8. PREDNISONE [Concomitant]
  9. PRAVASTATIN [Concomitant]
  10. OXYCODONE HCL AND ACETAMINOPHEN [Concomitant]
  11. ATENOLOL [Concomitant]
  12. EFFEXOR [Concomitant]
  13. VENLAFAXINE [Concomitant]
  14. RANITIDINE [Concomitant]

REACTIONS (5)
  - PELVIC FRACTURE [None]
  - RESPIRATORY ARREST [None]
  - UPPER LIMB FRACTURE [None]
  - DEATH [None]
  - FALL [None]
